FAERS Safety Report 8180736-X (Version None)
Quarter: 2012Q1

REPORT INFORMATION
  Report Type: 
  Country: None (occurrence: None)
  Receive Date: 20120302
  Receipt Date: 20120223
  Transmission Date: 20120608
  Serious: Yes (Hospitalization)
  Sender: FDA-Public Use
  Company Number: FR-JNJFOC-20120209392

PATIENT
  Sex: Female

DRUGS (12)
  1. RISPERDAL [Suspect]
     Route: 048
     Dates: start: 20111018
  2. ASPIRIN [Concomitant]
     Route: 065
  3. LASIX [Concomitant]
     Route: 065
  4. ACETAMINOPHEN [Concomitant]
     Route: 065
  5. RISPERDAL [Suspect]
     Indication: PRODUCT USED FOR UNKNOWN INDICATION
     Route: 048
  6. BRONCHODUAL [Concomitant]
     Route: 065
  7. POTASSIUM CHLORIDE [Concomitant]
     Route: 065
  8. AMIODARONE HCL [Concomitant]
     Route: 065
  9. SPIRIVA [Concomitant]
     Route: 065
  10. LEXOMIL [Suspect]
     Indication: PRODUCT USED FOR UNKNOWN INDICATION
     Route: 048
     Dates: end: 20111018
  11. IMOVANE [Concomitant]
     Route: 065
  12. TRANSIPEG [Concomitant]
     Route: 065

REACTIONS (2)
  - ABNORMAL BEHAVIOUR [None]
  - ANXIETY [None]
